FAERS Safety Report 4860830-9 (Version None)
Quarter: 2005Q4

REPORT INFORMATION
  Report Type: 
  Country: None (occurrence: None)
  Receive Date: 20051216
  Receipt Date: 20051128
  Transmission Date: 20060501
  Serious: No
  Sender: FDA-Public Use
  Company Number: US_0507119910

PATIENT
  Age: 45 Year
  Sex: Female
  Weight: 100.7 kg

DRUGS (8)
  1. ZYPREXA [Suspect]
     Indication: DISSOCIATIVE IDENTITY DISORDER
     Dosage: SEE IMAGE
     Route: 048
     Dates: start: 20031222, end: 20040707
  2. ZYPREXA [Suspect]
     Indication: DISSOCIATIVE IDENTITY DISORDER
     Dosage: SEE IMAGE
     Route: 048
     Dates: start: 20040807, end: 20050404
  3. ZYPREXA [Suspect]
     Indication: DISSOCIATIVE IDENTITY DISORDER
     Dosage: SEE IMAGE
     Route: 048
     Dates: start: 19980422
  4. GLUCOPHAGE ^UNS^ (METFORMIN HYDROCHLORIDE) [Concomitant]
  5. AMARYL/SWE/GLIMEPIRIDE) [Concomitant]
  6. SEROQUEL/UK/(QUETIAPINE FUMARATE) [Concomitant]
  7. ABILIFY [Concomitant]
  8. TRICOR [Concomitant]

REACTIONS (12)
  - BLOOD POTASSIUM INCREASED [None]
  - DEHYDRATION [None]
  - DIABETES MELLITUS [None]
  - IRON DEFICIENCY ANAEMIA [None]
  - MENTAL DISORDER [None]
  - MICROCYTIC ANAEMIA [None]
  - POSTMENOPAUSAL HAEMORRHAGE [None]
  - PRESCRIBED OVERDOSE [None]
  - RENAL FAILURE [None]
  - RENAL IMPAIRMENT [None]
  - UTERINE LEIOMYOMA [None]
  - WEIGHT INCREASED [None]
